FAERS Safety Report 6341877-2 (Version None)
Quarter: 2009Q3

REPORT INFORMATION
  Report Type: 
  Country: None (occurrence: None)
  Receive Date: 20090904
  Receipt Date: 20090902
  Transmission Date: 20100115
  Serious: Yes (Hospitalization)
  Sender: FDA-Public Use
  Company Number: DE-AMGEN-UK360588

PATIENT
  Sex: Female

DRUGS (11)
  1. NPLATE [Suspect]
     Indication: IDIOPATHIC THROMBOCYTOPENIC PURPURA
     Dates: start: 20090325
  2. L-THYROXIN [Concomitant]
     Route: 048
  3. METFORMIN HCL [Concomitant]
     Route: 048
  4. OMEPRAZOLE [Concomitant]
     Route: 048
  5. ALLOPURINOL [Concomitant]
     Route: 048
  6. BISOPROLOL [Concomitant]
     Route: 048
  7. DIOVAN [Concomitant]
     Route: 048
  8. NOVODIGAL [Concomitant]
     Route: 048
  9. LASIX [Concomitant]
     Route: 048
  10. PALLADONE [Concomitant]
     Route: 048
  11. SPIRONOLACTONE [Concomitant]
     Route: 048

REACTIONS (2)
  - PERICARDIAL EFFUSION [None]
  - PLATELET COUNT DECREASED [None]
